FAERS Safety Report 6313081-5 (Version None)
Quarter: 2009Q3

REPORT INFORMATION
  Report Type: 
  Country: None (occurrence: None)
  Receive Date: 20090818
  Receipt Date: 20090805
  Transmission Date: 20100115
  Serious: Yes (Hospitalization)
  Sender: FDA-Public Use
  Company Number: PHHY2009DE33258

PATIENT
  Sex: Male

DRUGS (3)
  1. LEPONEX [Suspect]
     Dosage: 200 MG, ONCE/SINGLE
     Route: 048
     Dates: start: 20090805, end: 20090805
  2. VALPROIC ACID [Concomitant]
     Dosage: 150 MG DAILY
  3. RISPERDAL [Concomitant]
     Dosage: 6 MG DAILY

REACTIONS (3)
  - ASTHENIA [None]
  - DRUG DISPENSING ERROR [None]
  - VERTIGO [None]
